FAERS Safety Report 7923444-X (Version None)
Quarter: 2011Q4

REPORT INFORMATION
  Report Type: 
  Country: None (occurrence: None)
  Receive Date: 20111117
  Receipt Date: 20110203
  Transmission Date: 20120403
  Serious: No
  Sender: FDA-Public Use
  Company Number: US-AMGEN-USASP2011006676

PATIENT
  Age: 59 Year
  Sex: Female
  Weight: 108.84 kg

DRUGS (1)
  1. ENBREL [Suspect]
     Indication: PSORIASIS
     Dosage: 50 MG, QWK
     Route: 058
     Dates: start: 20100730

REACTIONS (5)
  - INJECTION SITE DISCOMFORT [None]
  - INJECTION SITE ERYTHEMA [None]
  - INJECTION SITE HAEMORRHAGE [None]
  - INJECTION SITE SWELLING [None]
  - INJECTION SITE HAEMATOMA [None]
